FAERS Safety Report 5402630-7 (Version None)
Quarter: 2007Q3

REPORT INFORMATION
  Report Type: 
  Country: None (occurrence: None)
  Receive Date: 20070801
  Receipt Date: 20070625
  Transmission Date: 20080115
  Serious: No
  Sender: FDA-Public Use
  Company Number: A0643564A

PATIENT
  Age: 36 Year
  Sex: Female

DRUGS (7)
  1. IMITREX [Suspect]
     Indication: MIGRAINE
     Dosage: 1TAB AS REQUIRED
     Route: 048
  2. IMITREX [Suspect]
     Route: 058
  3. PREVACID [Concomitant]
  4. ACTOS [Concomitant]
  5. B12 VITAMIN [Concomitant]
  6. MULTI-VITAMIN [Concomitant]
  7. HYZAAR [Concomitant]

REACTIONS (4)
  - DRUG INEFFECTIVE [None]
  - FLUSHING [None]
  - HEART RATE INCREASED [None]
  - PHARMACEUTICAL PRODUCT COMPLAINT [None]
